FAERS Safety Report 19727969 (Version 3)
Quarter: 2021Q4

REPORT INFORMATION
  Report Type: Spontaneous
  Country: CA (occurrence: CA)
  Receive Date: 20210820
  Receipt Date: 20211107
  Transmission Date: 20220304
  Serious: Yes (Other)
  Sender: FDA-Public Use
  Company Number: CA-CELLTRION INC.-2021CA011375

PATIENT

DRUGS (5)
  1. INFLECTRA [Suspect]
     Active Substance: INFLIXIMAB-DYYB
     Indication: Colitis ulcerative
     Dosage: 400 MG Q 0 ,2, 6, THEN EVERY 8 WEEKS
     Route: 042
     Dates: start: 20210727
  2. INFLECTRA [Suspect]
     Active Substance: INFLIXIMAB-DYYB
     Dosage: 400 MG Q 0 ,2, 6, THEN EVERY 8 WEEKS
     Route: 042
     Dates: start: 20210809, end: 20210809
  3. HYDROCORTISONE [Concomitant]
     Active Substance: HYDROCORTISONE
     Indication: Premedication
     Dosage: 100 MG
     Dates: start: 20210809, end: 20210809
  4. MESALAMINE [Concomitant]
     Active Substance: MESALAMINE
     Dosage: UNK
  5. PREDNISONE [Concomitant]
     Active Substance: PREDNISONE
     Dosage: 40 MG, 1X/DAY
     Route: 065

REACTIONS (11)
  - Pruritus [Recovered/Resolved]
  - Urticaria [Recovered/Resolved]
  - Incorrect dose administered [Unknown]
  - Abdominal pain [Recovered/Resolved]
  - Rash [Not Recovered/Not Resolved]
  - Paraesthesia oral [Not Recovered/Not Resolved]
  - Lip swelling [Not Recovered/Not Resolved]
  - Swollen tongue [Not Recovered/Not Resolved]
  - Flushing [Not Recovered/Not Resolved]
  - Nasal congestion [Recovered/Resolved]
  - Dyspnoea [Unknown]

NARRATIVE: CASE EVENT DATE: 20210809
